FAERS Safety Report 10016805 (Version 1)
Quarter: 2014Q1

REPORT INFORMATION
  Report Type: Report from Study
  Country: MX (occurrence: MX)
  Receive Date: 20140318
  Receipt Date: 20140318
  Transmission Date: 20141002
  Serious: Yes (Other)
  Sender: FDA-Public Use
  Company Number: PHHY2014MX032299

PATIENT
  Age: 76 Year
  Sex: Male

DRUGS (2)
  1. EXFORGE HCT [Suspect]
     Indication: HYPERTENSION
     Dosage: 1 DF (160/5/12.5MG) DAILY
     Route: 048
     Dates: start: 2011, end: 201308
  2. DIOVAN [Suspect]
     Dosage: UKN (80 MG) UNK
     Dates: start: 2011, end: 201308

REACTIONS (2)
  - Deafness [Unknown]
  - Condition aggravated [Unknown]
